FAERS Safety Report 21059850 (Version 1)
Quarter: 2022Q3

REPORT INFORMATION
  Report Type: Spontaneous
  Country: US (occurrence: US)
  Receive Date: 20220708
  Receipt Date: 20220708
  Transmission Date: 20221027
  Serious: No
  Sender: FDA-Public Use
  Company Number: US-SA-SAC20220630001183

PATIENT
  Age: 64 Year
  Sex: Male

DRUGS (21)
  1. DUPIXENT [Suspect]
     Active Substance: DUPILUMAB
     Indication: Dermatitis atopic
     Dosage: 300MG, Q4W
     Route: 058
     Dates: start: 20211118
  2. ASPIRIN [Concomitant]
     Active Substance: ASPIRIN
  3. CALCIUM\VITAMIN D [Concomitant]
     Active Substance: CALCIUM\VITAMIN D
  4. CITALOPRAM [Concomitant]
     Active Substance: CITALOPRAM HYDROBROMIDE
  5. CLOMIPHENE [Concomitant]
     Active Substance: CLOMIPHENE
  6. HUMALOG [Concomitant]
     Active Substance: INSULIN LISPRO
  7. HYDRALAZINE [Concomitant]
     Active Substance: HYDRALAZINE HYDROCHLORIDE
  8. HYDROXYZINE PAMOATE [Concomitant]
     Active Substance: HYDROXYZINE PAMOATE
  9. IPRATROPIUM BROMIDE [Concomitant]
     Active Substance: IPRATROPIUM BROMIDE
  10. IRON [Concomitant]
     Active Substance: IRON
  11. MAGNESIUM OXIDE [Concomitant]
     Active Substance: MAGNESIUM OXIDE
  12. MONTELUKAST [Concomitant]
     Active Substance: MONTELUKAST SODIUM
  13. OLMESARTAN [Concomitant]
     Active Substance: OLMESARTAN
  14. FISH OIL\OMEGA-3 FATTY ACIDS [Concomitant]
     Active Substance: FISH OIL\OMEGA-3 FATTY ACIDS
  15. RESTASIS [Concomitant]
     Active Substance: CYCLOSPORINE
  16. ROSUVASTATIN [Concomitant]
     Active Substance: ROSUVASTATIN
  17. TACROLIMUS [Concomitant]
     Active Substance: TACROLIMUS
     Route: 061
  18. TRESIBA [Concomitant]
     Active Substance: INSULIN DEGLUDEC
  19. VITAMIN D NOS [Concomitant]
     Active Substance: VITAMIN D NOS
  20. VITAMINS NOS [Concomitant]
     Active Substance: VITAMINS
  21. UNITHROID [Concomitant]
     Active Substance: LEVOTHYROXINE SODIUM

REACTIONS (2)
  - Dermatitis atopic [Not Recovered/Not Resolved]
  - Product use issue [Unknown]

NARRATIVE: CASE EVENT DATE: 20211118
